FAERS Safety Report 25265669 (Version 1)
Quarter: 2025Q2

REPORT INFORMATION
  Report Type: Spontaneous
  Country: US (occurrence: US)
  Receive Date: 20250503
  Receipt Date: 20250503
  Transmission Date: 20250717
  Serious: No
  Sender: MANKIND PHARMA
  Company Number: US-MankindUS-000352

PATIENT
  Sex: Female

DRUGS (1)
  1. NITROFURANTOIN MONOHYDRATE MACROCRYSTALS [Suspect]
     Active Substance: NITROFURANTOIN\NITROFURANTOIN MONOHYDRATE
     Indication: Urinary tract infection
     Dosage: STRENGTH: 100MG?PKG SIZE: 100
     Route: 048
     Dates: start: 20250318, end: 20250320

REACTIONS (4)
  - Secretion discharge [Unknown]
  - Respiratory disorder [Unknown]
  - Nausea [Unknown]
  - Vomiting [Unknown]

NARRATIVE: CASE EVENT DATE: 20250319
